FAERS Safety Report 8855367 (Version 1)
Quarter: 2012Q4

REPORT INFORMATION
  Report Type: 
  Country: US (occurrence: US)
  Receive Date: 20121023
  Receipt Date: 20121023
  Transmission Date: 20130627
  Serious: No
  Sender: FDA-Public Use
  Company Number: US-AMGEN-USASP2012056038

PATIENT
  Age: 56 Year
  Sex: Female

DRUGS (1)
  1. ENBREL [Suspect]
     Indication: STOMATITIS
     Dosage: 50 mg, 2 times/wk
     Route: 058
     Dates: start: 20120817

REACTIONS (2)
  - Injection site reaction [Recovered/Resolved]
  - Injection site erythema [Recovered/Resolved]
